FAERS Safety Report 9940715 (Version 1)
Quarter: 2014Q1

REPORT INFORMATION
  Report Type: Spontaneous
  Country: US (occurrence: US)
  Receive Date: 20140303
  Receipt Date: 20140303
  Transmission Date: 20141002
  Serious: No
  Sender: FDA-Public Use
  Company Number: US-TEVA-463547USA

PATIENT
  Sex: Female
  Weight: 60.38 kg

DRUGS (3)
  1. COPAXONE [Suspect]
     Indication: RELAPSING-REMITTING MULTIPLE SCLEROSIS
     Dates: end: 20140130
  2. NIFEDIPINE [Concomitant]
     Indication: HYPERTENSION
     Dosage: 30 MILLIGRAM DAILY;
  3. ALPRAZOLAM [Concomitant]
     Indication: SLEEP DISORDER

REACTIONS (1)
  - Rash pruritic [Not Recovered/Not Resolved]
